FAERS Safety Report 9829948 (Version 2)
Quarter: 2014Q2

REPORT INFORMATION
  Report Type: Spontaneous
  Country: CO (occurrence: CO)
  Receive Date: 20140120
  Receipt Date: 20140410
  Transmission Date: 20141212
  Serious: Yes (Other)
  Sender: FDA-Public Use
  Company Number: CO-JNJFOC-20140107353

PATIENT
  Sex: Female
  Weight: 62 kg

DRUGS (1)
  1. SIMPONI [Suspect]
     Indication: RHEUMATOID ARTHRITIS
     Route: 058
     Dates: start: 20131223

REACTIONS (4)
  - Viral infection [Unknown]
  - Arthritis [Not Recovered/Not Resolved]
  - Skin discolouration [Unknown]
  - Headache [Unknown]
